FAERS Safety Report 17956764 (Version 1)
Quarter: 2020Q2

REPORT INFORMATION
  Report Type: Report from Study
  Country: DO (occurrence: DO)
  Receive Date: 20200629
  Receipt Date: 20200629
  Transmission Date: 20200714
  Serious: Yes (Disabling)
  Sender: FDA-Public Use
  Company Number: PHHY2019DO014783

PATIENT
  Age: 48 Year
  Sex: Female

DRUGS (1)
  1. GILENYA [Suspect]
     Active Substance: FINGOLIMOD HYDROCHLORIDE
     Indication: RELAPSING-REMITTING MULTIPLE SCLEROSIS
     Dosage: 0.5 MG, QD
     Route: 065
     Dates: start: 20190114

REACTIONS (11)
  - Motor dysfunction [Not Recovered/Not Resolved]
  - Pyrexia [Unknown]
  - Feeling abnormal [Not Recovered/Not Resolved]
  - Malaise [Recovering/Resolving]
  - Depressed mood [Unknown]
  - Anxiety [Unknown]
  - Headache [Unknown]
  - Limb discomfort [Not Recovered/Not Resolved]
  - Loss of personal independence in daily activities [Unknown]
  - Discomfort [Unknown]
  - Fatigue [Unknown]

NARRATIVE: CASE EVENT DATE: 20200116
